FAERS Safety Report 7759542 (Version 4)
Quarter: 2020Q3

REPORT INFORMATION
  Report Type: Report from Study
  Country: DE (occurrence: DE)
  Receive Date: 20110113
  Receipt Date: 20140528
  Transmission Date: 20201105
  Serious: Yes (Hospitalization)
  Sender: FDA-Public Use
  Company Number: DE-ROCHE-752716

PATIENT
  Age: 53 Year
  Sex: Female
  Weight: 72.5 kg

DRUGS (5)
  1. IBANDRONIC ACID. [Suspect]
     Active Substance: IBANDRONIC ACID
     Indication: METASTASES TO BONE
     Route: 042
     Dates: end: 20110906
  2. DOCETAXEL. [Suspect]
     Active Substance: DOCETAXEL
     Indication: BREAST CANCER METASTATIC
     Route: 042
     Dates: start: 20100914, end: 20110208
  3. PAMIDRONIC ACID [Suspect]
     Active Substance: PAMIDRONIC ACID
     Indication: BREAST CANCER METASTATIC
     Route: 042
     Dates: start: 20090415, end: 20110906
  4. CORTISON [Concomitant]
     Active Substance: CORTISONE ACETATE
     Indication: PSORIASIS
     Route: 061
     Dates: start: 20110408
  5. BEVACIZUMAB. [Suspect]
     Active Substance: BEVACIZUMAB
     Indication: BREAST CANCER METASTATIC
     Route: 042
     Dates: start: 20100914, end: 20110926

REACTIONS (4)
  - Dental caries [Recovered/Resolved]
  - Osteonecrosis of jaw [Recovered/Resolved]
  - Osteomyelitis [Recovered/Resolved with Sequelae]
  - Metastases to liver [Unknown]

NARRATIVE: CASE EVENT DATE: 20110815
